FAERS Safety Report 7274873-1 (Version None)
Quarter: 2011Q1

REPORT INFORMATION
  Report Type: 
  Country: None (occurrence: None)
  Receive Date: 20110204
  Receipt Date: 20110131
  Transmission Date: 20110831
  Serious: Yes (Other)
  Sender: FDA-Public Use
  Company Number: US-GENZYME-CAMP-1001169

PATIENT
  Sex: Female
  Weight: 201 kg

DRUGS (16)
  1. CAMPATH [Suspect]
     Indication: MULTIPLE SCLEROSIS
     Dosage: 12 MG, QDX5
     Route: 042
     Dates: start: 20100426, end: 20100430
  2. VITAMIN B COMPLEX CAP [Concomitant]
     Indication: VITAMIN B12 DEFICIENCY
     Dosage: 1 TAB, QD
     Route: 048
     Dates: start: 20081202
  3. IRON [Concomitant]
     Indication: SUPPLEMENTATION THERAPY
     Dosage: 1 TAB, QD
     Route: 048
     Dates: start: 20081202
  4. MIRENA [Concomitant]
     Indication: CONTRACEPTION
     Dosage: 20 U/G, QD
     Route: 015
     Dates: start: 20090128
  5. BIOTIN [Concomitant]
     Indication: PRODUCT USED FOR UNKNOWN INDICATION
     Dosage: 1000 MG, QD
     Route: 048
     Dates: start: 20090526
  6. MAXALT [Concomitant]
     Indication: MIGRAINE
     Dosage: 10 MG, PRN
     Route: 048
     Dates: start: 20070101
  7. NEURONTIN [Concomitant]
     Indication: PRODUCT USED FOR UNKNOWN INDICATION
     Dosage: 1200 MG, QD
     Route: 048
     Dates: start: 20091105
  8. EFFEXOR [Concomitant]
     Indication: ANXIETY
     Dosage: 225 MG, QD
     Route: 048
     Dates: start: 20081212
  9. CALCIUM CITRATE [Concomitant]
     Indication: SUPPLEMENTATION THERAPY
     Dosage: 500 MG, QD
     Route: 048
     Dates: start: 20090701
  10. ZINC [Concomitant]
     Indication: SUPPLEMENTATION THERAPY
     Dosage: 1 TAB, QD
     Route: 048
     Dates: start: 20081202
  11. REBIF [Suspect]
     Indication: MULTIPLE SCLEROSIS
     Dosage: 44 MCG, TIW
     Route: 058
     Dates: start: 20080407, end: 20100405
  12. PRENATAL VITAMINS [Concomitant]
     Indication: SUPPLEMENTATION THERAPY
     Dosage: 1 TAB, QD
     Route: 048
     Dates: start: 20080201
  13. VITAMIN B-12 [Concomitant]
     Indication: VITAMIN B12 DEFICIENCY
     Dosage: 1 MG, ONCE MONTHLY
     Route: 030
     Dates: start: 20090123
  14. FOLIC ACID [Concomitant]
     Indication: SUPPLEMENTATION THERAPY
     Dosage: 800 MG, QD
     Route: 048
     Dates: start: 20090526
  15. KEPPRA [Concomitant]
     Indication: PRODUCT USED FOR UNKNOWN INDICATION
     Dosage: 750 MG, BID
     Route: 048
     Dates: start: 20091105
  16. PROZAC [Concomitant]
     Indication: DEPRESSION
     Dosage: 20 MG, QD
     Route: 048
     Dates: start: 20090916

REACTIONS (1)
  - EAR NEOPLASM MALIGNANT [None]
